FAERS Safety Report 5246908-9 (Version None)
Quarter: 2007Q1

REPORT INFORMATION
  Report Type: 
  Country: None (occurrence: None)
  Receive Date: 20070226
  Receipt Date: 20070220
  Transmission Date: 20070707
  Serious: Yes (Hospitalization)
  Sender: FDA-Public Use
  Company Number: PT-ROXANE LABORATORIES, INC-2007-BP-02580RO

PATIENT
  Age: 79 Year

DRUGS (1)
  1. DIGOXIN [Suspect]
     Dosage: 30 MG (OVERDOSE) X 1
     Route: 048

REACTIONS (5)
  - COMA [None]
  - DRUG TOXICITY [None]
  - HAEMODYNAMIC INSTABILITY [None]
  - NODAL RHYTHM [None]
  - RENAL FAILURE ACUTE [None]
